FAERS Safety Report 5196556-4 (Version None)
Quarter: 2006Q4

REPORT INFORMATION
  Report Type: 
  Country: None (occurrence: None)
  Receive Date: 20061222
  Receipt Date: 20061211
  Transmission Date: 20070319
  Serious: Yes (Hospitalization)
  Sender: FDA-Public Use
  Company Number: MEDI-0005101

PATIENT
  Age: 17 Month

DRUGS (6)
  1. SYNAGIS [Suspect]
     Indication: ANTIVIRAL PROPHYLAXIS
     Dosage: 130 MG, INTRAMUSCULAR (SEE IMAGE)
     Route: 030
     Dates: start: 20051012, end: 20060306
  2. SYNAGIS [Suspect]
     Indication: ANTIVIRAL PROPHYLAXIS
     Dosage: 130 MG, INTRAMUSCULAR (SEE IMAGE)
     Route: 030
     Dates: start: 20051012
  3. SYNAGIS [Suspect]
     Indication: ANTIVIRAL PROPHYLAXIS
     Dosage: 130 MG, INTRAMUSCULAR (SEE IMAGE)
     Route: 030
     Dates: start: 20051109
  4. SYNAGIS [Suspect]
     Indication: ANTIVIRAL PROPHYLAXIS
     Dosage: 130 MG, INTRAMUSCULAR (SEE IMAGE)
     Route: 030
     Dates: start: 20051209
  5. SYNAGIS [Suspect]
     Indication: ANTIVIRAL PROPHYLAXIS
     Dosage: 130 MG, INTRAMUSCULAR (SEE IMAGE)
     Route: 030
     Dates: start: 20060111
  6. SYNAGIS [Suspect]
     Indication: ANTIVIRAL PROPHYLAXIS
     Dosage: 130 MG, INTRAMUSCULAR (SEE IMAGE)
     Route: 030
     Dates: start: 20060208

REACTIONS (1)
  - ASTHMA [None]
